FAERS Safety Report 9191642 (Version 2)
Quarter: 2013Q2

REPORT INFORMATION
  Report Type: Spontaneous
  Country: US (occurrence: US)
  Receive Date: 20130326
  Receipt Date: 20130528
  Transmission Date: 20140414
  Serious: No
  Sender: FDA-Public Use
  Company Number: US-009507513-1303USA011410

PATIENT
  Age: 30 Year
  Sex: Female
  Weight: 130.61 kg

DRUGS (1)
  1. IMPLANON [Suspect]
     Indication: CONTRACEPTION
     Dosage: 1 ROD 4 YEARS, LEFT ARM
     Dates: start: 20120511

REACTIONS (2)
  - Thrombosis [Not Recovered/Not Resolved]
  - Menstruation irregular [Not Recovered/Not Resolved]
